FAERS Safety Report 6074201-3 (Version None)
Quarter: 2009Q1

REPORT INFORMATION
  Report Type: 
  Country: None (occurrence: None)
  Receive Date: 20090211
  Receipt Date: 20090202
  Transmission Date: 20090719
  Serious: Yes (Other)
  Sender: FDA-Public Use
  Company Number: US-AVENTIS-200910540EU

PATIENT
  Age: 68 Year
  Sex: Female

DRUGS (5)
  1. ANTACID TAB [Suspect]
     Indication: DYSPEPSIA
     Dosage: DOSE: UNK
  2. SERETIDE [Suspect]
     Indication: ASTHMA
     Dosage: DOSE: 2 PUFFS
     Route: 055
     Dates: start: 20030101
  3. DOMPERIDONE [Suspect]
     Indication: DYSPEPSIA
  4. VENTOLIN [Suspect]
     Indication: ASTHMA
     Route: 055
  5. SPIRIVA [Suspect]
     Indication: CHRONIC OBSTRUCTIVE PULMONARY DISEASE
     Dosage: DOSE: UNK
     Dates: start: 20070101

REACTIONS (4)
  - ASTHMA [None]
  - COUGH [None]
  - DYSPNOEA [None]
  - LOWER RESPIRATORY TRACT INFECTION [None]
